FAERS Safety Report 13240785 (Version 1)
Quarter: 2017Q1

REPORT INFORMATION
  Report Type: Spontaneous
  Country: US (occurrence: US)
  Receive Date: 20170216
  Receipt Date: 20170216
  Transmission Date: 20170428
  Serious: No
  Sender: FDA-Public Use
  Company Number: US-RELYPSA-RLY2016004093

PATIENT
  Age: 88 Year
  Sex: Female

DRUGS (2)
  1. VELTASSA [Suspect]
     Active Substance: PATIROMER
     Indication: HYPERKALAEMIA
     Dosage: 8.4 G, QD
     Route: 048
     Dates: start: 20161116, end: 20161116
  2. VELTASSA [Suspect]
     Active Substance: PATIROMER
     Dosage: 4.2 G, QD
     Route: 048
     Dates: start: 20161117, end: 20161123

REACTIONS (8)
  - Dizziness [Recovered/Resolved]
  - Rash pruritic [Recovering/Resolving]
  - Gait disturbance [Recovered/Resolved]
  - Vulvovaginal mycotic infection [Recovered/Resolved]
  - Inappropriate schedule of drug administration [Recovered/Resolved]
  - Asthenia [Recovered/Resolved]
  - Tremor [Recovered/Resolved]
  - Neuralgia [Recovering/Resolving]

NARRATIVE: CASE EVENT DATE: 20161116
